FAERS Safety Report 25896472 (Version 1)
Quarter: 2025Q4

REPORT INFORMATION
  Report Type: Spontaneous
  Country: MX (occurrence: MX)
  Receive Date: 20251008
  Receipt Date: 20251008
  Transmission Date: 20260118
  Serious: Yes (Other)
  Sender: PFIZER
  Company Number: MX-PFIZER INC-PV202500119007

PATIENT
  Age: 35 Year
  Sex: Male

DRUGS (1)
  1. LORLATINIB [Suspect]
     Active Substance: LORLATINIB
     Indication: Lung neoplasm
     Dosage: 100 MG, DAILY

REACTIONS (2)
  - Hypothyroidism [Unknown]
  - Hypertriglyceridaemia [Unknown]
